FAERS Safety Report 8491432-3 (Version None)
Quarter: 2012Q3

REPORT INFORMATION
  Report Type: 
  Country: None (occurrence: None)
  Receive Date: 20120706
  Receipt Date: 20120626
  Transmission Date: 20120928
  Serious: Yes (Other)
  Sender: FDA-Public Use
  Company Number: OM-SANOFI-AVENTIS-2012SA038068

PATIENT
  Age: 66 Year
  Sex: Female

DRUGS (3)
  1. CEFUROXIME [Concomitant]
     Route: 042
     Dates: start: 20111026, end: 20111029
  2. GLYBURIDE [Concomitant]
     Route: 048
     Dates: start: 20111024
  3. ENOXAPARIN SODIUM [Suspect]
     Route: 065
     Dates: start: 20111027, end: 20111030

REACTIONS (2)
  - POST PROCEDURAL HAEMORRHAGE [None]
  - DEVICE RELATED INFECTION [None]
